FAERS Safety Report 24604757 (Version 1)
Quarter: 2024Q4

REPORT INFORMATION
  Report Type: Spontaneous
  Country: US (occurrence: US)
  Receive Date: 20241111
  Receipt Date: 20241111
  Transmission Date: 20250115
  Serious: No
  Sender: Harrow Health
  Company Number: US-IMP-2024000910

PATIENT
  Sex: Male

DRUGS (2)
  1. VEVYE [Suspect]
     Active Substance: CYCLOSPORINE
     Indication: Product used for unknown indication
     Route: 047
  2. Other eye drops [Concomitant]
     Indication: Glaucoma
     Route: 065

REACTIONS (2)
  - Instillation site irritation [Unknown]
  - Instillation site erythema [Unknown]
